FAERS Safety Report 8054685-1 (Version None)
Quarter: 2012Q1

REPORT INFORMATION
  Report Type: 
  Country: None (occurrence: None)
  Receive Date: 20120119
  Receipt Date: 20120113
  Transmission Date: 20120608
  Serious: No
  Sender: FDA-Public Use
  Company Number: US-PFIZER INC-2012010956

PATIENT
  Sex: Male
  Weight: 70.295 kg

DRUGS (5)
  1. CELEBREX [Suspect]
     Indication: OSTEOARTHRITIS
  2. OXYCODONE [Concomitant]
     Dosage: 10 MG, 2X/DAY
  3. CELEBREX [Suspect]
     Indication: SPINAL OSTEOARTHRITIS
  4. CELEBREX [Suspect]
     Indication: ARTHRALGIA
     Dosage: 200 MG, 2X/DAY
     Route: 048
     Dates: start: 20060101
  5. CELEBREX [Suspect]

REACTIONS (3)
  - DRUG DOSE OMISSION [None]
  - MUSCULOSKELETAL STIFFNESS [None]
  - ARTHRALGIA [None]
